FAERS Safety Report 6719914-2 (Version None)
Quarter: 2010Q2

REPORT INFORMATION
  Report Type: 
  Country: None (occurrence: None)
  Receive Date: 20100507
  Receipt Date: 20100423
  Transmission Date: 20101027
  Serious: Yes (Other)
  Sender: FDA-Public Use
  Company Number: 2010052695

PATIENT

DRUGS (1)
  1. FRAGMIN [Suspect]
     Indication: EMBOLISM VENOUS

REACTIONS (1)
  - NEOPLASM [None]
